FAERS Safety Report 21578353 (Version 1)
Quarter: 2022Q4

REPORT INFORMATION
  Report Type: Spontaneous
  Country: DE (occurrence: DE)
  Receive Date: 20221110
  Receipt Date: 20221110
  Transmission Date: 20230113
  Serious: Yes (Other)
  Sender: FDA-Public Use
  Company Number: DE-GUERBET / GUERBET GMBH-DE-20220103

PATIENT
  Age: 83 Year
  Sex: Female
  Weight: 63 kg

DRUGS (1)
  1. DOTAREM [Suspect]
     Active Substance: GADOTERATE MEGLUMINE
     Indication: Angiogram
     Route: 042
     Dates: start: 20221025, end: 20221025

REACTIONS (3)
  - Dysphonia [Unknown]
  - Throat irritation [Unknown]
  - Oropharyngeal discomfort [Unknown]

NARRATIVE: CASE EVENT DATE: 20221025
